FAERS Safety Report 25361401 (Version 3)
Quarter: 2025Q4

REPORT INFORMATION
  Report Type: Spontaneous
  Country: JP (occurrence: JP)
  Receive Date: 20250527
  Receipt Date: 20251031
  Transmission Date: 20260117
  Serious: Yes (Death, Life-Threatening, Hospitalization, Other)
  Sender: MERCK SHARP & DOHME LLC
  Company Number: JP-009507513-2287832

PATIENT
  Age: 64 Year
  Sex: Male

DRUGS (3)
  1. KEYTRUDA [Suspect]
     Active Substance: PEMBROLIZUMAB
     Indication: Non-small cell lung cancer stage III
     Route: 041
     Dates: start: 202501, end: 202503
  2. CISPLATIN [Concomitant]
     Active Substance: CISPLATIN
     Indication: Non-small cell lung cancer stage III
     Route: 041
     Dates: start: 202501, end: 202503
  3. GEMCITABINE [Concomitant]
     Active Substance: GEMCITABINE
     Indication: Non-small cell lung cancer stage III
     Dosage: FREQUENCY: TWICE EVERY 3 WEEKS (DAY 1 AND DAY 8 IN EVERY COURSES)
     Route: 041
     Dates: start: 202501, end: 202503

REACTIONS (10)
  - Sepsis [Fatal]
  - Haemophagocytic lymphohistiocytosis [Fatal]
  - Respiratory disorder [Unknown]
  - Taste disorder [Unknown]
  - Postoperative wound infection [Unknown]
  - Dyspnoea [Unknown]
  - Renal failure [Unknown]
  - Altered state of consciousness [Unknown]
  - Urinary retention [Unknown]
  - Lung assist device therapy [Unknown]

NARRATIVE: CASE EVENT DATE: 20250101
